FAERS Safety Report 17274809 (Version 1)
Quarter: 2020Q1

REPORT INFORMATION
  Report Type: Spontaneous
  Country: EG (occurrence: EG)
  Receive Date: 20200115
  Receipt Date: 20200115
  Transmission Date: 20200409
  Serious: Yes (Life-Threatening, Other)
  Sender: FDA-Public Use
  Company Number: EG-AMGEN-EGYSP2020002676

PATIENT

DRUGS (1)
  1. ROMIPLOSTIM [Suspect]
     Active Substance: ROMIPLOSTIM
     Indication: IMMUNE THROMBOCYTOPENIC PURPURA
     Dosage: 1 MICROGRAM/KILOGRAM
     Route: 065

REACTIONS (8)
  - Transaminases increased [Unknown]
  - Platelet count increased [Unknown]
  - Haemorrhage [Unknown]
  - Therapeutic product effect incomplete [Unknown]
  - Headache [Unknown]
  - Rhinitis [Unknown]
  - Diarrhoea [Unknown]
  - Myalgia [Unknown]
